FAERS Safety Report 14587338 (Version 2)
Quarter: 2018Q1

REPORT INFORMATION
  Report Type: Report from Study
  Country: NL (occurrence: NL)
  Receive Date: 20180301
  Receipt Date: 20180315
  Transmission Date: 20180509
  Serious: Yes (Death, Hospitalization)
  Sender: FDA-Public Use
  Company Number: NL-ASTRAZENECA-2018SE22524

PATIENT
  Age: 47 Year
  Sex: Female

DRUGS (19)
  1. DOXORUBICIN [Suspect]
     Active Substance: DOXORUBICIN
     Indication: BREAST CANCER STAGE III
     Dosage: 60 MG/M???
     Route: 042
     Dates: start: 20170127
  2. CYCLOPHOSPHAMIDE. [Suspect]
     Active Substance: CYCLOPHOSPHAMIDE
     Indication: BREAST CANCER STAGE III
     Dosage: 600 MG/M???
     Route: 042
     Dates: start: 20170210
  3. CARBOPLATIN. [Suspect]
     Active Substance: CARBOPLATIN
     Indication: BREAST CANCER STAGE III
     Route: 065
     Dates: start: 20170224
  4. PACLITAXEL. [Suspect]
     Active Substance: PACLITAXEL
     Indication: BREAST CANCER STAGE III
     Dosage: C1D8 80MG/M2
     Route: 065
     Dates: start: 20170303
  5. OLAPARIB. [Suspect]
     Active Substance: OLAPARIB
     Indication: BREAST CANCER STAGE III
     Route: 048
     Dates: start: 20170616, end: 20170824
  6. PEGFILGRASTIM [Suspect]
     Active Substance: PEGFILGRASTIM
     Indication: BREAST CANCER STAGE III
     Dosage: 6 MG GIVEN 24-48 HOURS AFTER COMPLETION OF ADMINISTRATION OF EVERY CHEMOTHERAPY CYCLE
     Route: 058
  7. PACLITAXEL. [Suspect]
     Active Substance: PACLITAXEL
     Indication: BREAST CANCER STAGE III
     Dosage: 80MG/M2
     Route: 065
     Dates: start: 20170407
  8. CYCLOPHOSPHAMIDE. [Suspect]
     Active Substance: CYCLOPHOSPHAMIDE
     Indication: BREAST CANCER STAGE III
     Dosage: 600 MG/M???
     Route: 042
     Dates: start: 20161230
  9. DOXORUBICIN [Suspect]
     Active Substance: DOXORUBICIN
     Indication: BREAST CANCER STAGE III
     Dosage: 60 MG/M???
     Route: 042
     Dates: start: 20170210
  10. CYCLOPHOSPHAMIDE. [Suspect]
     Active Substance: CYCLOPHOSPHAMIDE
     Indication: BREAST CANCER STAGE III
     Dosage: 600 MG/M???
     Route: 042
     Dates: start: 20170113
  11. CARBOPLATIN. [Suspect]
     Active Substance: CARBOPLATIN
     Indication: BREAST CANCER STAGE III
     Route: 065
     Dates: start: 20170310
  12. PACLITAXEL. [Suspect]
     Active Substance: PACLITAXEL
     Indication: BREAST CANCER STAGE III
     Dosage: 80 MG/M2
     Route: 065
     Dates: start: 20170224
  13. DOXORUBICIN [Suspect]
     Active Substance: DOXORUBICIN
     Indication: BREAST CANCER STAGE III
     Dosage: 60 MG/M???
     Route: 042
     Dates: start: 20161230
  14. CARBOPLATIN. [Suspect]
     Active Substance: CARBOPLATIN
     Indication: BREAST CANCER STAGE III
     Route: 065
     Dates: start: 20170303
  15. PACLITAXEL. [Suspect]
     Active Substance: PACLITAXEL
     Indication: BREAST CANCER STAGE III
     Dosage: C1D15 80MG/M2
     Route: 065
     Dates: start: 20170310
  16. PACLITAXEL. [Suspect]
     Active Substance: PACLITAXEL
     Indication: BREAST CANCER STAGE III
     Dosage: 80 MG/M2
     Route: 065
     Dates: start: 20170316
  17. CYCLOPHOSPHAMIDE. [Suspect]
     Active Substance: CYCLOPHOSPHAMIDE
     Indication: BREAST CANCER STAGE III
     Dosage: 600 MG/M???
     Route: 042
     Dates: start: 20170127
  18. DOXORUBICIN [Suspect]
     Active Substance: DOXORUBICIN
     Indication: BREAST CANCER STAGE III
     Dosage: 60 MG/M???
     Route: 042
     Dates: start: 20170113
  19. PACLITAXEL. [Suspect]
     Active Substance: PACLITAXEL
     Indication: BREAST CANCER STAGE III
     Dosage: C2D8 80MG/M2
     Route: 065
     Dates: start: 20170324

REACTIONS (1)
  - Haemolytic anaemia [Not Recovered/Not Resolved]

NARRATIVE: CASE EVENT DATE: 20170823
